FAERS Safety Report 12495414 (Version 1)
Quarter: 2016Q2

REPORT INFORMATION
  Report Type: Spontaneous
  Country: GB (occurrence: GB)
  Receive Date: 20160624
  Receipt Date: 20160624
  Transmission Date: 20160815
  Serious: Yes (Hospitalization)
  Sender: FDA-Public Use
  Company Number: GB-ACTAVIS-2016-13083

PATIENT
  Age: 78 Year
  Sex: Female

DRUGS (3)
  1. SPIRONOLACTONE (UNKNOWN) [Suspect]
     Active Substance: SPIRONOLACTONE
     Indication: PRODUCT USED FOR UNKNOWN INDICATION
     Dosage: 25 MG, QAM
     Route: 065
     Dates: start: 201511, end: 20160307
  2. COCODAMOL [Concomitant]
     Active Substance: ACETAMINOPHEN\CODEINE PHOSPHATE
     Indication: PAIN
     Dosage: UNK, PRN
     Route: 065
  3. NAPROXEN. [Concomitant]
     Active Substance: NAPROXEN
     Indication: PAIN
     Dosage: UNK UNK, PRN
     Route: 065

REACTIONS (11)
  - Vertigo [Not Recovered/Not Resolved]
  - Rash generalised [Recovering/Resolving]
  - Musculoskeletal discomfort [Recovering/Resolving]
  - Pain in extremity [Recovering/Resolving]
  - Foreign body sensation in eyes [Recovering/Resolving]
  - Ear disorder [Recovering/Resolving]
  - Dry skin [Recovering/Resolving]
  - Skin exfoliation [Recovering/Resolving]
  - Abnormal loss of weight [Recovering/Resolving]
  - Dry eye [Recovering/Resolving]
  - Grip strength decreased [Recovering/Resolving]
